FAERS Safety Report 7265824-4 (Version None)
Quarter: 2011Q1

REPORT INFORMATION
  Report Type: 
  Country: None (occurrence: None)
  Receive Date: 20110131
  Receipt Date: 20110124
  Transmission Date: 20110831
  Serious: Yes (Hospitalization, Congenital Anomaly)
  Sender: FDA-Public Use
  Company Number: A0883896A

PATIENT
  Sex: Female
  Weight: 3.4 kg

DRUGS (3)
  1. PAXIL [Suspect]
     Indication: DEPRESSION
     Route: 064
  2. PAROXETINE HCL [Suspect]
     Indication: DEPRESSION
     Dosage: 20MG PER DAY
     Route: 064
  3. PRENATAL VITAMINS [Concomitant]

REACTIONS (2)
  - DRUG EXPOSURE DURING PREGNANCY [None]
  - ATRIAL SEPTAL DEFECT [None]
